FAERS Safety Report 7829907-X (Version None)
Quarter: 2011Q4

REPORT INFORMATION
  Report Type: 
  Country: None (occurrence: None)
  Receive Date: 20111021
  Receipt Date: 20110928
  Transmission Date: 20120403
  Serious: Yes (Disabling)
  Sender: FDA-Public Use
  Company Number: JP-BAYER-2011-089721

PATIENT
  Age: 61 Year
  Sex: Male
  Weight: 65 kg

DRUGS (4)
  1. ACETYLSALICYLIC ACID SRT [Suspect]
  2. LIVALO [Suspect]
     Indication: HYPERLIPIDAEMIA
     Dosage: DAILY DOSE 1 MG
     Route: 048
  3. MICARDIS [Suspect]
     Indication: HYPERTENSION
     Dosage: UNK
  4. PLAVIX [Suspect]
     Indication: MYOCARDIAL INFARCTION
     Dosage: DAILY DOSE 75 MG
     Route: 048

REACTIONS (1)
  - PNEUMONITIS [None]
